FAERS Safety Report 5282612-9 (Version None)
Quarter: 2007Q1

REPORT INFORMATION
  Report Type: 
  Country: None (occurrence: None)
  Receive Date: 20070326
  Receipt Date: 20070309
  Transmission Date: 20070707
  Serious: Yes (Other)
  Sender: FDA-Public Use
  Company Number: #100

PATIENT
  Age: 43 Year
  Sex: Female
  Weight: 76 kg

DRUGS (1)
  1. PROVOCHOLINE [Suspect]
     Indication: ASTHMA
     Dosage: 0.0625 MG/ML - 16 MG/ML
     Dates: start: 20070112

REACTIONS (2)
  - COUGH [None]
  - POST PROCEDURAL COMPLICATION [None]
